FAERS Safety Report 9607869 (Version 1)
Quarter: 2013Q4

REPORT INFORMATION
  Report Type: Spontaneous
  Country: BR (occurrence: BR)
  Receive Date: 20131009
  Receipt Date: 20131009
  Transmission Date: 20140711
  Serious: Yes (Other)
  Sender: FDA-Public Use
  Company Number: BR-009507513-1310BRA003679

PATIENT
  Age: 82 Year
  Sex: Male
  Weight: 70 kg

DRUGS (12)
  1. NASONEX [Suspect]
     Indication: INCREASED UPPER AIRWAY SECRETION
     Dosage: UNK, QD
     Route: 045
     Dates: start: 20130924
  2. NASONEX [Suspect]
     Indication: WHEEZING
  3. ZETSIM [Suspect]
     Indication: BLOOD CHOLESTEROL ABNORMAL
     Dosage: UNK
     Route: 048
  4. AMLODIPINE BESYLATE [Concomitant]
     Indication: HYPERTENSION
  5. GLIFAGE [Concomitant]
     Indication: BLOOD GLUCOSE ABNORMAL
  6. AVALOX [Concomitant]
     Indication: INCREASED UPPER AIRWAY SECRETION
     Dosage: 400 MG, QD
     Dates: start: 20130924, end: 20130930
  7. AVALOX [Concomitant]
     Indication: WHEEZING
  8. ALENIA [Concomitant]
     Indication: INCREASED UPPER AIRWAY SECRETION
     Dosage: UNK, QD
     Dates: start: 20130924, end: 20130928
  9. ALENIA [Concomitant]
     Indication: WHEEZING
  10. OMEPRAZOLE [Concomitant]
     Indication: PROPHYLAXIS
     Dosage: 40 MG, QD
  11. PREDNISONE [Concomitant]
     Indication: INCREASED UPPER AIRWAY SECRETION
     Dosage: 20 MG, UNK
     Dates: start: 20130924
  12. PREDNISONE [Concomitant]
     Indication: WHEEZING

REACTIONS (3)
  - Aphonia [Not Recovered/Not Resolved]
  - Throat irritation [Not Recovered/Not Resolved]
  - Off label use [Unknown]
